FAERS Safety Report 16002457 (Version 1)
Quarter: 2019Q1

REPORT INFORMATION
  Report Type: Spontaneous
  Country: US (occurrence: US)
  Receive Date: 20190225
  Receipt Date: 20190225
  Transmission Date: 20190418
  Serious: No
  Sender: FDA-Public Use
  Company Number: US-ASTRAZENECA-2019SE18531

PATIENT
  Age: 25385 Day
  Sex: Female
  Weight: 45.4 kg

DRUGS (1)
  1. TAGRISSO [Suspect]
     Active Substance: OSIMERTINIB
     Indication: LUNG NEOPLASM MALIGNANT
     Route: 048
     Dates: start: 20190103

REACTIONS (8)
  - Skin discolouration [Not Recovered/Not Resolved]
  - Blood calcium decreased [Unknown]
  - Vitamin D decreased [Unknown]
  - Insomnia [Not Recovered/Not Resolved]
  - Acne cystic [Recovering/Resolving]
  - Rash [Not Recovered/Not Resolved]
  - Hair colour changes [Not Recovered/Not Resolved]
  - Dry skin [Not Recovered/Not Resolved]

NARRATIVE: CASE EVENT DATE: 201901
